FAERS Safety Report 8054741-8 (Version None)
Quarter: 2012Q1

REPORT INFORMATION
  Report Type: 
  Country: None (occurrence: None)
  Receive Date: 20120111
  Receipt Date: 20111229
  Transmission Date: 20120608
  Serious: Yes (Other)
  Sender: FDA-Public Use
  Company Number: 2012-00002

PATIENT
  Age: 62 Year
  Sex: Female
  Weight: 83.9154 kg

DRUGS (3)
  1. LISINOPRIL [Suspect]
     Indication: HYPERTENSION
     Dosage: 1 DOSAGE FORMS (1 DOSAGE FORMS, 1 IN 1 D), PER ORAL
     Route: 048
     Dates: start: 20110901, end: 20111101
  2. LASIX [Concomitant]
  3. POTASSIUM (KCL) [Concomitant]

REACTIONS (2)
  - COUGH [None]
  - GASTROOESOPHAGEAL REFLUX DISEASE [None]
